FAERS Safety Report 9167078 (Version 1)
Quarter: 2013Q1

REPORT INFORMATION
  Report Type: Spontaneous
  Country: US (occurrence: None)
  Receive Date: 20130228
  Receipt Date: 20130228
  Transmission Date: 20140127
  Serious: Yes (Life-Threatening)
  Sender: FDA-Public Use
  Company Number: B0869594A

PATIENT
  Age: 20 Year
  Sex: Female

DRUGS (2)
  1. ONDANSETRON HYDROCHLORIDE (FORMULATION UNKNOWN) (ONDANSETRON HYDROCHLORIDE) [Suspect]
     Indication: PRODUCT USED FOR UNKNOWN INDICATION
     Route: 042
     Dates: start: 20110910
  2. AZITHROMYCIN (FORMULATION UNKNOWN) (AZITHROMYCIN) [Suspect]
     Route: 042
     Dates: start: 20110912

REACTIONS (17)
  - Electrocardiogram QT prolonged [None]
  - Ventricular arrhythmia [None]
  - Cardiac arrest [None]
  - Arthralgia [None]
  - Oropharyngeal pain [None]
  - Ear discomfort [None]
  - Blood sodium decreased [None]
  - Ventricular fibrillation [None]
  - Bradycardia [None]
  - Hypotension [None]
  - Mydriasis [None]
  - Decerebration [None]
  - Ventricular tachycardia [None]
  - Pulseless electrical activity [None]
  - Brain injury [None]
  - Hypoxic-ischaemic encephalopathy [None]
  - Ischaemic hepatitis [None]
